FAERS Safety Report 7041600-2 (Version None)
Quarter: 2010Q4

REPORT INFORMATION
  Report Type: 
  Country: None (occurrence: None)
  Receive Date: 20101013
  Receipt Date: 20100511
  Transmission Date: 20110411
  Serious: No
  Sender: FDA-Public Use
  Company Number: US-ASTRAZENECA-2010SE07804

PATIENT
  Age: 24284 Day
  Sex: Female
  Weight: 65.8 kg

DRUGS (3)
  1. SYMBICORT [Suspect]
     Indication: ASTHMA
     Dosage: 160 /4.5 UG 2 PUFFS BID
     Route: 055
     Dates: start: 20100213, end: 20100301
  2. NORVASC [Concomitant]
     Route: 065
  3. ALBUTEROL [Concomitant]
     Dosage: AS NEEDED
     Route: 065

REACTIONS (7)
  - ASTHMA [None]
  - DRUG INEFFECTIVE [None]
  - DYSPNOEA [None]
  - PRODUCT TASTE ABNORMAL [None]
  - SALVAGE THERAPY [None]
  - THERAPY REGIMEN CHANGED [None]
  - WHEEZING [None]
